FAERS Safety Report 23947058 (Version 2)
Quarter: 2024Q3

REPORT INFORMATION
  Report Type: Spontaneous
  Country: US (occurrence: US)
  Receive Date: 20240606
  Receipt Date: 20240703
  Transmission Date: 20241017
  Serious: Yes (Other)
  Sender: VIFOR
  Company Number: US-Vifor (International) Inc.-VIT-2024-04955

PATIENT
  Sex: Female
  Weight: 86.6 kg

DRUGS (2)
  1. MIRCERA [Suspect]
     Active Substance: METHOXY POLYETHYLENE GLYCOL-EPOETIN BETA
     Indication: Nephrogenic anaemia
     Dosage: SUBSEQUENT ADMINISTRATION ON 19-FEB-2024, 01-MAR-2024, 18-APR-2024, 03-MAY-2024 AND 15-MAY-2024
     Route: 058
     Dates: start: 20240206
  2. MIRCERA [Suspect]
     Active Substance: METHOXY POLYETHYLENE GLYCOL-EPOETIN BETA
     Indication: End stage renal disease
     Dosage: SUBSEQUENT ADMINISTRATION ON 25-JUN-2024
     Route: 058
     Dates: start: 20240612

REACTIONS (1)
  - Aplasia pure red cell [Unknown]

NARRATIVE: CASE EVENT DATE: 20240101
